FAERS Safety Report 12250058 (Version 1)
Quarter: 2016Q2

REPORT INFORMATION
  Report Type: Spontaneous
  Country: US (occurrence: US)
  Receive Date: 20160408
  Receipt Date: 20160408
  Transmission Date: 20160815
  Serious: No
  Sender: FDA-Public Use
  Company Number: US-PFIZER INC-2016194741

PATIENT
  Age: 54 Year
  Sex: Male

DRUGS (1)
  1. INLYTA [Suspect]
     Active Substance: AXITINIB
     Indication: NEOPLASM MALIGNANT
     Dosage: 10 MG, 2X/DAY (2 TABS Q 12 HR)
     Route: 048

REACTIONS (2)
  - Neoplasm malignant [Unknown]
  - Disease progression [Unknown]

NARRATIVE: CASE EVENT DATE: 20160404
